FAERS Safety Report 8766865 (Version 2)
Quarter: 2014Q1

REPORT INFORMATION
  Report Type: Spontaneous
  Country: US (occurrence: US)
  Receive Date: 20120903
  Receipt Date: 20140305
  Transmission Date: 20141002
  Serious: Yes (Hospitalization, Other)
  Sender: FDA-Public Use
  Company Number: US-BAYER-2012-088510

PATIENT
  Age: 30 Year
  Sex: Female

DRUGS (5)
  1. YAZ [Suspect]
     Indication: ACNE
     Dosage: UNK
     Dates: start: 200606
  2. PAXIL [Concomitant]
     Dosage: 60 MG, UNK
     Route: 048
     Dates: start: 20080617
  3. PROZAC [Concomitant]
     Dosage: 20 MG, UNK
     Route: 048
     Dates: start: 20080617
  4. ABILIFY [Concomitant]
     Dosage: 2.5 MG, UNK
     Dates: start: 20080617
  5. LAMICTAL [Concomitant]
     Dosage: 20 MG, UNK
     Dates: start: 20080617

REACTIONS (5)
  - Cholecystitis chronic [None]
  - Cholelithiasis [None]
  - Injury [None]
  - Pain [None]
  - Pain [None]
